APPROVED DRUG PRODUCT: DIVALPROEX SODIUM
Active Ingredient: DIVALPROEX SODIUM
Strength: EQ 250MG VALPROIC ACID
Dosage Form/Route: TABLET, EXTENDED RELEASE;ORAL
Application: A078445 | Product #001
Applicant: PH HEALTH LTD
Approved: Feb 26, 2009 | RLD: No | RS: No | Type: DISCN